FAERS Safety Report 10239280 (Version 5)
Quarter: 2014Q3

REPORT INFORMATION
  Report Type: Spontaneous
  Country: US (occurrence: US)
  Receive Date: 20140616
  Receipt Date: 20140708
  Transmission Date: 20150326
  Serious: Yes (Other)
  Sender: FDA-Public Use
  Company Number: US-PFIZER INC-2014162267

PATIENT
  Age: 48 Year
  Sex: Female
  Weight: 60.32 kg

DRUGS (14)
  1. LETAIRIS [Concomitant]
     Active Substance: AMBRISENTAN
     Dosage: 10 MG, 1X/DAY
  2. REVATIO [Suspect]
     Active Substance: SILDENAFIL CITRATE
     Indication: SCLERODERMA
     Dosage: 20 MG, 3X/DAY
     Route: 048
     Dates: start: 2007
  3. HYDROXYCHLOROQUINE [Concomitant]
     Active Substance: HYDROXYCHLOROQUINE
     Dosage: 200 MG, 1X/DAY
  4. POTASSIUM [Concomitant]
     Active Substance: POTASSIUM
     Dosage: 20 MEQ, UNK
  5. PENTOXIFYLLINE. [Concomitant]
     Active Substance: PENTOXIFYLLINE
     Dosage: 400 MG, THREE TIMES A WEEK
  6. DIPYRIDAMOLE. [Concomitant]
     Active Substance: DIPYRIDAMOLE
     Dosage: 50 MG, 3X/DAY
  7. NEXIUM [Concomitant]
     Active Substance: ESOMEPRAZOLE MAGNESIUM
     Dosage: 40 MG, 2X/DAY
  8. CELEBREX [Concomitant]
     Active Substance: CELECOXIB
     Dosage: 100 MG, 2X/DAY
  9. LORATADINE. [Concomitant]
     Active Substance: LORATADINE
     Dosage: 10 MG, 1X/DAY
  10. LYRICA [Concomitant]
     Active Substance: PREGABALIN
     Dosage: 50 MG, 2X/DAY
  11. AMLODIPINE [Concomitant]
     Active Substance: AMLODIPINE BESYLATE
     Dosage: 5 MG, 1X/DAY
  12. FOLIC ACID. [Concomitant]
     Active Substance: FOLIC ACID
     Dosage: 1 MG, 1X/DAY
  13. FUROSEMIDE. [Concomitant]
     Active Substance: FUROSEMIDE
     Dosage: 20 MG, 1X/DAY
  14. CENTRUM SILVER WOMEN^S 50+ [Concomitant]
     Active Substance: VITAMINS
     Dosage: 1 DF, 1X/DAY

REACTIONS (1)
  - Pulmonary arterial hypertension [Unknown]

NARRATIVE: CASE EVENT DATE: 2009
